FAERS Safety Report 18633699 (Version 3)
Quarter: 2021Q1

REPORT INFORMATION
  Report Type: Report from Study
  Country: DE (occurrence: DE)
  Receive Date: 20201218
  Receipt Date: 20210326
  Transmission Date: 20210419
  Serious: Yes (Hospitalization)
  Sender: FDA-Public Use
  Company Number: DE-EMD SERONO-9205983

PATIENT
  Age: 46 Year
  Sex: Female
  Weight: 57 kg

DRUGS (6)
  1. CLADRIBINE. [Suspect]
     Active Substance: CLADRIBINE
     Indication: RELAPSING-REMITTING MULTIPLE SCLEROSIS
     Dosage: YEAR ONE MONTH ONE THERAPY: TOOK 20 MG ON 19 JUN 2018 AND 10 MG ON 23 JUN 2018.
     Route: 048
     Dates: start: 20180619, end: 20180623
  2. FAMPYRA [Concomitant]
     Active Substance: DALFAMPRIDINE
     Indication: MULTIPLE SCLEROSIS
     Route: 048
  3. AMLODIPINE [Concomitant]
     Active Substance: AMLODIPINE BESYLATE
     Indication: HYPERTENSION
     Route: 048
  4. CLADRIBINE. [Suspect]
     Active Substance: CLADRIBINE
     Dosage: YEAR ONE MONTH TWO THERAPY: 20 MG ON 17 JUL 2018 AND 10 MG ON 21 JUL 2018.
     Route: 048
     Dates: start: 20180717, end: 20180721
  5. CLADRIBINE. [Suspect]
     Active Substance: CLADRIBINE
     Dosage: YEAR TWO MONTH TWO THERAPY: 20 MG ON 30 OCT 2019 AND 10 MG ON 03 NOV 2019 (MOST RECENT).
     Route: 048
     Dates: start: 20191030
  6. CLADRIBINE. [Suspect]
     Active Substance: CLADRIBINE
     Dosage: YEAR TWO MONTH ONE THERAPY: 20 MG ON 26 JUN 2019 AND 10 MG ON 30 JUN 2019.
     Route: 048
     Dates: start: 20190626, end: 20190630

REACTIONS (3)
  - Acute kidney injury [Recovered/Resolved with Sequelae]
  - Glomerulonephritis [Not Recovered/Not Resolved]
  - Lymphopenia [Recovered/Resolved]

NARRATIVE: CASE EVENT DATE: 201911
